FAERS Safety Report 24946978 (Version 3)
Quarter: 2025Q2

REPORT INFORMATION
  Report Type: Spontaneous
  Country: US (occurrence: US)
  Receive Date: 20250210
  Receipt Date: 20250522
  Transmission Date: 20250716
  Serious: Yes (Other)
  Sender: SANOFI AVENTIS
  Company Number: US-SA-2025SA036407

PATIENT
  Age: 41 Year
  Sex: Female

DRUGS (2)
  1. KEVZARA [Suspect]
     Active Substance: SARILUMAB
     Indication: Rheumatoid arthritis
     Dosage: 200 MG, QOW
     Route: 058
     Dates: start: 202501
  2. WEGOVY [Concomitant]
     Active Substance: SEMAGLUTIDE

REACTIONS (4)
  - Rheumatoid arthritis [Unknown]
  - Therapeutic response shortened [Unknown]
  - Joint swelling [Unknown]
  - Arthralgia [Unknown]

NARRATIVE: CASE EVENT DATE: 20250101
